FAERS Safety Report 6174516-4 (Version None)
Quarter: 2009Q2

REPORT INFORMATION
  Report Type: 
  Country: None (occurrence: None)
  Receive Date: 20090430
  Receipt Date: 20080707
  Transmission Date: 20091009
  Serious: No
  Sender: FDA-Public Use
  Company Number: US-ASTRAZENECA-2008UW13620

PATIENT
  Age: 60 Year
  Sex: Male
  Weight: 106.6 kg

DRUGS (3)
  1. NEXIUM [Suspect]
     Indication: GASTROINTESTINAL ULCER
     Route: 048
  2. GABAPENTIN [Concomitant]
  3. BUPROPION HCL [Concomitant]

REACTIONS (5)
  - ABDOMINAL PAIN [None]
  - CONSTIPATION [None]
  - DRY MOUTH [None]
  - FOOD POISONING [None]
  - VOMITING [None]
